FAERS Safety Report 5627757-6 (Version None)
Quarter: 2008Q1

REPORT INFORMATION
  Report Type: 
  Country: None (occurrence: None)
  Receive Date: 20080215
  Receipt Date: 20080212
  Transmission Date: 20080703
  Serious: Yes (Other)
  Sender: FDA-Public Use
  Company Number: A0709088A

PATIENT
  Age: 18 Year
  Sex: Female

DRUGS (3)
  1. LAMICTAL [Suspect]
     Indication: DRUG USE FOR UNKNOWN INDICATION
     Route: 048
     Dates: start: 20070302, end: 20080201
  2. TOPAMAX [Suspect]
     Indication: DRUG USE FOR UNKNOWN INDICATION
     Dates: start: 20080201
  3. VITAMINS [Concomitant]

REACTIONS (4)
  - CONVULSION [None]
  - DRUG INEFFECTIVE [None]
  - DYSKINESIA [None]
  - ROAD TRAFFIC ACCIDENT [None]
